FAERS Safety Report 6647607-9 (Version None)
Quarter: 2010Q1

REPORT INFORMATION
  Report Type: 
  Country: None (occurrence: None)
  Receive Date: 20100323
  Receipt Date: 20100323
  Transmission Date: 20100710
  Serious: Yes (Death)
  Sender: FDA-Public Use
  Company Number: None

PATIENT
  Age: 84 Year
  Sex: Male
  Weight: 81.1 kg

DRUGS (1)
  1. HEPARIN [Suspect]
     Indication: DEEP VEIN THROMBOSIS
     Dosage: 5000 UNITS TID SQ
     Route: 058
     Dates: start: 20100309, end: 20100316

REACTIONS (5)
  - CYANOSIS [None]
  - HEPARIN-INDUCED THROMBOCYTOPENIA [None]
  - HEPATIC FUNCTION ABNORMAL [None]
  - METABOLIC ACIDOSIS [None]
  - POSTURING [None]
